FAERS Safety Report 4834837-1 (Version None)
Quarter: 2005Q4

REPORT INFORMATION
  Report Type: 
  Country: None (occurrence: None)
  Receive Date: 20051114
  Receipt Date: 20051105
  Transmission Date: 20060501
  Serious: Yes (Life-Threatening, Hospitalization, Disabling, Other)
  Sender: FDA-Public Use
  Company Number: 2005137968

PATIENT
  Age: 68 Year
  Sex: Male
  Weight: 149.2334 kg

DRUGS (8)
  1. LIPITOR [Suspect]
     Indication: HYPERLIPIDAEMIA
     Dosage: 10 MG (10 MG, 1 IN 1 D), ORAL
     Route: 048
     Dates: start: 20050601, end: 20050101
  2. LIPITOR [Suspect]
     Indication: HYPERLIPIDAEMIA
     Dosage: 10 MG (10 MG, 1 IN 1 D), ORAL
     Route: 048
     Dates: start: 20050601
  3. OTHER DERMATOLOGICAL PREPARATIONS (OTHER DERMATOLOGICAL PREPARATIONS) [Suspect]
     Indication: RASH
     Dosage: TOPICAL
     Route: 061
     Dates: start: 20050101
  4. OTHER DERMATOLOGICAL PREPARATIONS (OTHER DERMATOLOGICAL PREPARATIONS) [Suspect]
     Indication: URTICARIA
     Dosage: TOPICAL
     Route: 061
     Dates: start: 20050101
  5. MORPHINE [Suspect]
     Indication: PAIN
     Dates: start: 20051001
  6. ATENOLOL [Concomitant]
  7. INSULIN HUMULIN 70/30 (INSULIN HUMAN, INSULIN HUMAN INJECTION, ISOPHAN [Concomitant]
  8. ASPIRIN [Concomitant]

REACTIONS (22)
  - BLOOD BLISTER [None]
  - CHILLS [None]
  - DRUG HYPERSENSITIVITY [None]
  - FEELING ABNORMAL [None]
  - FEELING HOT AND COLD [None]
  - IMPAIRED HEALING [None]
  - INFECTION [None]
  - LEUKOCYTOCLASTIC VASCULITIS [None]
  - OEDEMA [None]
  - OEDEMA PERIPHERAL [None]
  - PAIN [None]
  - PAIN IN EXTREMITY [None]
  - PURULENCE [None]
  - PYREXIA [None]
  - RASH GENERALISED [None]
  - RASH PRURITIC [None]
  - SCAB [None]
  - SKIN EXFOLIATION [None]
  - SKIN ODOUR ABNORMAL [None]
  - TREMOR [None]
  - URTICARIA [None]
  - WOUND SECRETION [None]
